FAERS Safety Report 9670816 (Version 2)
Quarter: 2014Q1

REPORT INFORMATION
  Report Type: Spontaneous
  Country: US (occurrence: US)
  Receive Date: 20131106
  Receipt Date: 20140103
  Transmission Date: 20141002
  Serious: Yes (Other)
  Sender: FDA-Public Use
  Company Number: US-JNJFOC-20131017315

PATIENT
  Age: 18 Year
  Sex: Male

DRUGS (1)
  1. XARELTO [Suspect]
     Indication: SUBCLAVIAN VEIN THROMBOSIS
     Route: 048
     Dates: start: 201310, end: 201310

REACTIONS (2)
  - Haematuria [Unknown]
  - Protein urine present [Unknown]
